FAERS Safety Report 13694863 (Version 1)
Quarter: 2017Q2

REPORT INFORMATION
  Report Type: Spontaneous
  Country: US (occurrence: US)
  Receive Date: 20170627
  Receipt Date: 20170627
  Transmission Date: 20170830
  Serious: Yes (Other)
  Sender: FDA-Public Use
  Company Number: US-SA-2017SA112836

PATIENT
  Age: 19 Year
  Sex: Female
  Weight: 42 kg

DRUGS (10)
  1. RIFAMPICIN [Suspect]
     Active Substance: RIFAMPIN
     Indication: TUBERCULOSIS
     Route: 065
  2. ISONIAZID. [Suspect]
     Active Substance: ISONIAZID
     Indication: TUBERCULOSIS
     Route: 065
  3. ETHAMBUTOL [Suspect]
     Active Substance: ETHAMBUTOL HYDROCHLORIDE
     Indication: TUBERCULOSIS
     Route: 065
  4. PYRAZINAMIDE. [Concomitant]
     Active Substance: PYRAZINAMIDE
     Indication: TUBERCULOSIS
  5. AZATHIOPRINE. [Concomitant]
     Active Substance: AZATHIOPRINE
     Dosage: TAPERED DOSE
  6. AZATHIOPRINE. [Concomitant]
     Active Substance: AZATHIOPRINE
     Dosage: WITH A PLAN TO GRADUALLY INCREASE THE DOSE TO 100-125 MG
     Route: 065
  7. METHYLPREDNISOLONE. [Suspect]
     Active Substance: METHYLPREDNISOLONE
     Indication: SYSTEMIC LUPUS ERYTHEMATOSUS
     Route: 065
     Dates: start: 2006, end: 201011
  8. METHYLPREDNISOLONE. [Suspect]
     Active Substance: METHYLPREDNISOLONE
     Indication: SYSTEMIC LUPUS ERYTHEMATOSUS
     Dosage: DOSE REDUCED
     Route: 065
     Dates: start: 201011
  9. METHYLPREDNISOLONE. [Suspect]
     Active Substance: METHYLPREDNISOLONE
     Indication: SYSTEMIC LUPUS ERYTHEMATOSUS
     Route: 042
  10. HYDROXYCHLOROQUINE [Concomitant]
     Active Substance: HYDROXYCHLOROQUINE
     Indication: SYSTEMIC LUPUS ERYTHEMATOSUS
     Route: 065

REACTIONS (19)
  - Rebound effect [Unknown]
  - Pain [Recovered/Resolved]
  - Tuberculosis [Recovered/Resolved]
  - Alopecia [Recovering/Resolving]
  - Joint effusion [Recovering/Resolving]
  - Muscle atrophy [Unknown]
  - Pyrexia [Recovered/Resolved]
  - Lung infiltration [Recovered/Resolved]
  - Systemic lupus erythematosus [Recovering/Resolving]
  - Limb asymmetry [Unknown]
  - Arthralgia [Recovered/Resolved]
  - Butterfly rash [Recovered/Resolved]
  - Nuclear magnetic resonance imaging abnormal [Recovering/Resolving]
  - Gait disturbance [Recovering/Resolving]
  - Asthenia [Recovered/Resolved]
  - Sputum culture positive [Recovered/Resolved]
  - Drug resistance [Unknown]
  - Osteonecrosis [Recovering/Resolving]
  - Cough [Recovered/Resolved]

NARRATIVE: CASE EVENT DATE: 2010
